FAERS Safety Report 16696397 (Version 1)
Quarter: 2019Q3

REPORT INFORMATION
  Report Type: Spontaneous
  Country: US (occurrence: US)
  Receive Date: 20190626
  Receipt Date: 20190626
  Transmission Date: 20191004
  Serious: No
  Sender: FDA-Public Use
  Company Number: None

PATIENT
  Age: 56 Year
  Sex: Female
  Weight: 89 kg

DRUGS (2)
  1. VALSARTAN. [Suspect]
     Active Substance: VALSARTAN
     Indication: PROTEINURIA
     Dates: start: 201905
  2. VALSARTAN. [Suspect]
     Active Substance: VALSARTAN
     Indication: LUPUS NEPHRITIS
     Dates: start: 201905

REACTIONS (3)
  - Pruritus [None]
  - Therapeutic response changed [None]
  - Abdominal pain [None]

NARRATIVE: CASE EVENT DATE: 20190505
